FAERS Safety Report 12401430 (Version 1)
Quarter: 2016Q2

REPORT INFORMATION
  Report Type: Spontaneous
  Country: US (occurrence: None)
  Receive Date: 20160524
  Receipt Date: 20160524
  Transmission Date: 20160815
  Serious: Yes (Hospitalization)
  Sender: FDA-Public Use
  Company Number: None

PATIENT
  Age: 66 Year
  Sex: Female
  Weight: 80.3 kg

DRUGS (1)
  1. NOLVADEX [Suspect]
     Active Substance: TAMOXIFEN CITRATE
     Dates: end: 20160510

REACTIONS (6)
  - Bronchitis [None]
  - Diastolic dysfunction [None]
  - Pulmonary embolism [None]
  - Atelectasis [None]
  - Emphysema [None]
  - Chronic obstructive pulmonary disease [None]

NARRATIVE: CASE EVENT DATE: 20160509
